FAERS Safety Report 10199619 (Version 1)
Quarter: 2014Q2

REPORT INFORMATION
  Report Type: Spontaneous
  Country: US (occurrence: None)
  Receive Date: 20140523
  Receipt Date: 20140523
  Transmission Date: 20141212
  Serious: No
  Sender: FDA-Public Use
  Company Number: None

PATIENT
  Age: 62 Year
  Sex: Female
  Weight: 76.2 kg

DRUGS (1)
  1. RECLAST [Suspect]
     Indication: OSTEOPENIA
     Dosage: INFUSION ?ANNUALLY ?INTO A VEIN
     Dates: start: 20140513

REACTIONS (9)
  - Pain [None]
  - Nausea [None]
  - Dizziness [None]
  - Dyspepsia [None]
  - Vertigo [None]
  - Vomiting [None]
  - Asthenia [None]
  - Headache [None]
  - Oesophageal pain [None]
